FAERS Safety Report 5873307-9 (Version None)
Quarter: 2008Q3

REPORT INFORMATION
  Report Type: 
  Country: None (occurrence: None)
  Receive Date: 20080908
  Receipt Date: 20080904
  Transmission Date: 20090109
  Serious: Yes (Disabling)
  Sender: FDA-Public Use
  Company Number: US-KINGPHARMUSA00001-K200801033

PATIENT

DRUGS (3)
  1. ALTACE [Suspect]
     Dosage: 1.25 MG, QD
     Dates: start: 20080425, end: 20080810
  2. BUMETANIDE [Concomitant]
     Dosage: 1 MG, QD
  3. SIMVASTATIN [Concomitant]
     Dosage: 40 MG, QD

REACTIONS (1)
  - RAYNAUD'S PHENOMENON [None]
